FAERS Safety Report 9272664 (Version 1)
Quarter: 2013Q2

REPORT INFORMATION
  Report Type: Spontaneous
  Country: US (occurrence: US)
  Receive Date: 20130506
  Receipt Date: 20130506
  Transmission Date: 20140414
  Serious: Yes (Hospitalization, Other)
  Sender: FDA-Public Use
  Company Number: US-ASTRAZENECA-2013SE29934

PATIENT
  Age: 75 Year
  Sex: Female
  Weight: 77.1 kg

DRUGS (9)
  1. OMEPRAZOLE [Suspect]
     Indication: DYSPEPSIA
     Route: 048
     Dates: start: 2010
  2. CRESTOR [Suspect]
     Indication: VASCULAR OCCLUSION
     Route: 048
     Dates: start: 200907, end: 201104
  3. CRESTOR [Suspect]
     Indication: VASCULAR OCCLUSION
     Route: 048
     Dates: start: 201104
  4. PAIN SHOT [Suspect]
     Indication: PAIN
     Route: 065
  5. CAPTOPRIL [Concomitant]
     Indication: HYPERTENSION
     Route: 048
     Dates: start: 2007
  6. LABETALOL [Concomitant]
     Indication: HYPERTENSION
     Route: 048
     Dates: start: 2007
  7. AMLODIPINE DESYLATE [Concomitant]
     Indication: HYPERTENSION
     Route: 048
     Dates: start: 2007
  8. OXYBUTYNIN [Concomitant]
     Indication: INCONTINENCE
     Route: 048
     Dates: start: 2010
  9. DOCQLACE [Concomitant]
     Indication: CONSTIPATION
     Dosage: UNKNOWN BID
     Route: 048
     Dates: start: 2010

REACTIONS (11)
  - Pneumonia [Unknown]
  - Malaise [Unknown]
  - Rectal haemorrhage [Unknown]
  - Weight increased [Unknown]
  - Haemorrhoids [Unknown]
  - Pain [Unknown]
  - Vomiting [Unknown]
  - Head injury [Unknown]
  - Adverse reaction [Unknown]
  - Diabetic neuropathy [Unknown]
  - Drug dose omission [Unknown]
